FAERS Safety Report 11155611 (Version 1)
Quarter: 2015Q2

REPORT INFORMATION
  Report Type: Spontaneous
  Country: SE (occurrence: SE)
  Receive Date: 20150602
  Receipt Date: 20150602
  Transmission Date: 20150821
  Serious: Yes (Death, Hospitalization, Other)
  Sender: FDA-Public Use
  Company Number: SE-CELGENE-SWE-2015055645

PATIENT
  Age: 59 Year
  Sex: Male

DRUGS (2)
  1. DEXAMETHASONE. [Concomitant]
     Active Substance: DEXAMETHASONE
     Indication: PLASMA CELL MYELOMA
     Route: 065
     Dates: start: 201502
  2. REVLIMID [Suspect]
     Active Substance: LENALIDOMIDE
     Indication: PLASMA CELL MYELOMA
     Route: 048
     Dates: start: 201502

REACTIONS (4)
  - Intestinal haemorrhage [Unknown]
  - Hepatic function abnormal [Unknown]
  - Myocardial infarction [Unknown]
  - Sepsis [Fatal]

NARRATIVE: CASE EVENT DATE: 20150304
